FAERS Safety Report 19191183 (Version 5)
Quarter: 2021Q4

REPORT INFORMATION
  Report Type: Report from Study
  Country: US (occurrence: US)
  Receive Date: 20210428
  Receipt Date: 20211222
  Transmission Date: 20220303
  Serious: No
  Sender: FDA-Public Use
  Company Number: NVSC2021US095865

PATIENT
  Sex: Male
  Weight: 163.29 kg

DRUGS (2)
  1. ENTRESTO [Suspect]
     Active Substance: SACUBITRIL\VALSARTAN
     Indication: Hypertension
     Dosage: 100 MG, BID (49/51)
     Route: 048
     Dates: start: 20210410
  2. ENTRESTO [Suspect]
     Active Substance: SACUBITRIL\VALSARTAN
     Indication: Oedema

REACTIONS (3)
  - Weight decreased [Not Recovered/Not Resolved]
  - Glycosylated haemoglobin decreased [Unknown]
  - Blood thyroid stimulating hormone decreased [Unknown]
